FAERS Safety Report 20728713 (Version 1)
Quarter: 2022Q2

REPORT INFORMATION
  Report Type: Spontaneous
  Country: CA (occurrence: CA)
  Receive Date: 20220420
  Receipt Date: 20220420
  Transmission Date: 20220721
  Serious: Yes (Hospitalization)
  Sender: FDA-Public Use
  Company Number: CA-TEVA-2022-CA-2027454

PATIENT
  Age: 26 Year
  Sex: Male

DRUGS (5)
  1. LACOSAMIDE [Suspect]
     Active Substance: LACOSAMIDE
     Indication: Seizure
     Dosage: 400 MILLIGRAM DAILY;
     Route: 065
  2. QUETIAPINE FUMARATE [Suspect]
     Active Substance: QUETIAPINE FUMARATE
     Indication: Seizure
     Route: 065
  3. FYCOMPA [Suspect]
     Active Substance: PERAMPANEL
     Indication: Seizure
     Dosage: 4 MILLIGRAM DAILY;
     Route: 048
  4. VALPROATE SODIUM [Suspect]
     Active Substance: VALPROATE SODIUM
     Indication: Seizure
     Dosage: 2000 MILLIGRAM DAILY;
     Route: 065
  5. VITAMIN B6 [Concomitant]
     Active Substance: PYRIDOXINE HYDROCHLORIDE
     Indication: Product used for unknown indication
     Route: 065

REACTIONS (9)
  - Anticonvulsant drug level above therapeutic [Recovered/Resolved]
  - Condition aggravated [Recovered/Resolved]
  - Epilepsy [Recovered/Resolved]
  - Excessive eye blinking [Recovered/Resolved]
  - Gaze palsy [Recovered/Resolved]
  - Musculoskeletal stiffness [Recovered/Resolved]
  - Posture abnormal [Recovered/Resolved]
  - Seizure [Recovered/Resolved]
  - Status epilepticus [Recovered/Resolved]
